FAERS Safety Report 10048413 (Version 2)
Quarter: 2014Q2

REPORT INFORMATION
  Report Type: Spontaneous
  Country: FR (occurrence: FR)
  Receive Date: 20140331
  Receipt Date: 20140403
  Transmission Date: 20141212
  Serious: Yes (Hospitalization)
  Sender: FDA-Public Use
  Company Number: FR-B.I. PHARMACEUTICALS,INC./RIDGEFIELD-2014-BI-13071FF

PATIENT
  Age: 85 Year
  Sex: Female

DRUGS (8)
  1. PRADAXA [Suspect]
     Indication: CARDIOVASCULAR EVENT PROPHYLAXIS
     Dosage: 220 MG
     Route: 048
     Dates: start: 201306, end: 20130905
  2. XARELTO [Suspect]
     Indication: CARDIOVASCULAR EVENT PROPHYLAXIS
     Dosage: 30 MG
     Route: 048
     Dates: start: 20130905, end: 20130916
  3. LOVENOX 6000 IU ANTI-XA/0.6ML [Concomitant]
     Indication: PHLEBITIS
     Route: 058
     Dates: start: 20130916
  4. PREVISCAN 20MG [Concomitant]
     Route: 048
     Dates: start: 20130916
  5. BISOPROLOL (FUMARATE ACID) [Concomitant]
     Dosage: 10 MG
     Route: 048
     Dates: start: 201306
  6. LEVOPHTA 0.05 POUR CENT [Concomitant]
     Route: 031
     Dates: start: 201306
  7. OPTICRON [Concomitant]
     Route: 031
     Dates: start: 201306
  8. LASILIX 40MG [Concomitant]
     Route: 048

REACTIONS (2)
  - Thrombophlebitis [Recovered/Resolved]
  - Drug ineffective [Recovered/Resolved with Sequelae]
